FAERS Safety Report 9080945 (Version 1)
Quarter: 2013Q1

REPORT INFORMATION
  Report Type: Report from Study
  Country: US (occurrence: US)
  Receive Date: 20130130
  Receipt Date: 20130130
  Transmission Date: 20140127
  Serious: No
  Sender: FDA-Public Use
  Company Number: US-ABBOTT-12P-163-0965181-00

PATIENT
  Sex: 0
  Weight: 63.11 kg

DRUGS (9)
  1. HUMIRA 40 MG/ 0.8 ML PRE-FILLED SYRINGE [Suspect]
     Indication: RHEUMATOID ARTHRITIS
  2. HUMIRA 40 MG/ 0.8 ML PRE-FILLED SYRINGE [Suspect]
     Dates: end: 201112
  3. ENBREL [Concomitant]
     Indication: RHEUMATOID ARTHRITIS
     Dates: start: 201203
  4. SULFASALAZINE [Concomitant]
     Indication: RHEUMATOID ARTHRITIS
  5. PREDNISONE [Concomitant]
     Indication: RHEUMATOID ARTHRITIS
  6. HORMONE REPLACEMENT MEDICATION [Concomitant]
     Indication: HORMONE REPLACEMENT THERAPY
  7. CARVEDILOL [Concomitant]
     Indication: CARDIAC DISORDER
  8. UNNAMED VITAMINS [Concomitant]
     Indication: VITAMIN SUPPLEMENTATION
  9. UNNAMED SUPPLEMENTS [Concomitant]
     Indication: SUPPLEMENTATION THERAPY

REACTIONS (4)
  - Fatigue [Not Recovered/Not Resolved]
  - Drug ineffective [Not Recovered/Not Resolved]
  - Pain [Not Recovered/Not Resolved]
  - Joint swelling [Not Recovered/Not Resolved]
